FAERS Safety Report 23190115 (Version 1)
Quarter: 2023Q4

REPORT INFORMATION
  Report Type: Report from Study
  Country: US (occurrence: US)
  Receive Date: 20231116
  Receipt Date: 20231116
  Transmission Date: 20240110
  Serious: Yes (Hospitalization, Other)
  Sender: FDA-Public Use
  Company Number: US-ALXN-A202306868AA

PATIENT
  Age: 31 Year
  Sex: Female

DRUGS (4)
  1. ULTOMIRIS [Suspect]
     Active Substance: RAVULIZUMAB-CWVZ
     Indication: Atypical haemolytic uraemic syndrome
     Dosage: UNK, EVERY EIGHT WEEKS
     Route: 042
     Dates: start: 20200121
  2. SOLIRIS [Suspect]
     Active Substance: ECULIZUMAB
     Indication: Atypical haemolytic uraemic syndrome
     Dosage: UNK
     Route: 065
  3. MENINGOCOCCAL POLYSACCHARIDE VACCINE A NOS [Suspect]
     Active Substance: MENINGOCOCCAL POLYSACCHARIDE VACCINE A\NEISSERIA MENINGITIDIS GROUP A CAPSULAR POLYSACCHARIDE ANTIGE
     Indication: Product used for unknown indication
     Dosage: UNK
     Route: 065
  4. TETANUS TOXOID ADSORBED (VACCINE) [Suspect]
     Active Substance: CLOSTRIDIUM TETANI TOXOID ANTIGEN (FORMALDEHYDE INACTIVATED)
     Indication: Product used for unknown indication
     Dosage: UNK
     Route: 065

REACTIONS (25)
  - Blood creatinine increased [Not Recovered/Not Resolved]
  - Peripheral swelling [Not Recovered/Not Resolved]
  - Illness [Unknown]
  - Contusion [Unknown]
  - Swelling face [Not Recovered/Not Resolved]
  - Pain in extremity [Unknown]
  - Pyrexia [Recovered/Resolved]
  - Pneumonia [Unknown]
  - Anxiety [Unknown]
  - Acne [Not Recovered/Not Resolved]
  - Fall [Unknown]
  - Cyanosis [Unknown]
  - Stress [Not Recovered/Not Resolved]
  - Fear [Unknown]
  - Feeling abnormal [Unknown]
  - Disturbance in attention [Unknown]
  - Gait disturbance [Unknown]
  - Fatigue [Unknown]
  - Headache [Unknown]
  - Dizziness [Unknown]
  - Insomnia [Unknown]
  - Dysstasia [Unknown]
  - Depression [Unknown]
  - Panic reaction [Unknown]
  - Blood pressure increased [Unknown]

NARRATIVE: CASE EVENT DATE: 20230201
